FAERS Safety Report 8026471-X (Version None)
Quarter: 2012Q1

REPORT INFORMATION
  Report Type: 
  Country: None (occurrence: None)
  Receive Date: 20120105
  Receipt Date: 20120105
  Transmission Date: 20120608
  Serious: Yes (Hospitalization)
  Sender: FDA-Public Use
  Company Number: ES-BAYER-2012-001122

PATIENT
  Age: 65 Year
  Sex: Male

DRUGS (3)
  1. IBUPROFEN [Interacting]
     Indication: SCIATICA
     Route: 048
     Dates: start: 20111011, end: 20111017
  2. CLOPIDOGREL [Interacting]
     Indication: VASCULAR GRAFT
     Route: 048
     Dates: start: 20110113, end: 20111017
  3. ASPIRIN [Suspect]
     Route: 048
     Dates: start: 20110113

REACTIONS (2)
  - GASTRIC ULCER HAEMORRHAGE [None]
  - SYNCOPE [None]
